FAERS Safety Report 14143593 (Version 2)
Quarter: 2018Q1

REPORT INFORMATION
  Report Type: Spontaneous
  Country: JP (occurrence: JP)
  Receive Date: 20171030
  Receipt Date: 20180102
  Transmission Date: 20180508
  Serious: Yes (Hospitalization, Other)
  Sender: FDA-Public Use
  Company Number: JP-ROCHE-2005267

PATIENT
  Age: 74 Year
  Sex: Female
  Weight: 47 kg

DRUGS (4)
  1. AVASTIN [Suspect]
     Active Substance: BEVACIZUMAB
     Dosage: DOSE INTERVAL: 3-4
     Route: 041
     Dates: start: 2017
  2. CARBOPLATIN. [Suspect]
     Active Substance: CARBOPLATIN
     Indication: CERVIX CARCINOMA
     Route: 041
     Dates: start: 20161207, end: 20170804
  3. PACLITAXEL. [Suspect]
     Active Substance: PACLITAXEL
     Indication: CERVIX CARCINOMA
     Route: 041
     Dates: start: 20161207, end: 20170804
  4. AVASTIN [Suspect]
     Active Substance: BEVACIZUMAB
     Indication: CERVIX CARCINOMA
     Dosage: DOSE INTERVAL: 3-4
     Route: 041
     Dates: start: 20161207, end: 20170804

REACTIONS (5)
  - Gastrointestinal perforation [Not Recovered/Not Resolved]
  - Stomatitis [Recovering/Resolving]
  - Hypertension [Recovering/Resolving]
  - Neutrophil count decreased [Recovered/Resolved]
  - Large intestinal ulcer [Unknown]

NARRATIVE: CASE EVENT DATE: 20161219
